FAERS Safety Report 21689932 (Version 1)
Quarter: 2022Q4

REPORT INFORMATION
  Report Type: Spontaneous
  Country: US (occurrence: None)
  Receive Date: 20221205
  Receipt Date: 20221205
  Transmission Date: 20230113
  Serious: No
  Sender: FDA-Public Use
  Company Number: None

PATIENT
  Age: 60 Year
  Sex: Male
  Weight: 79.38 kg

DRUGS (2)
  1. PROGRAF [Suspect]
     Active Substance: TACROLIMUS
     Indication: Immunodeficiency
     Dosage: OTHER QUANTITY : TAK 2 CAPSULES;?FREQUENCY : TWICE A DAY;?
     Route: 048
     Dates: start: 202207
  2. PROGRAF [Suspect]
     Active Substance: TACROLIMUS
     Indication: Liver transplant

REACTIONS (1)
  - Hepatic infection [None]
